FAERS Safety Report 15395989 (Version 2)
Quarter: 2018Q4

REPORT INFORMATION
  Report Type: Spontaneous
  Country: US (occurrence: US)
  Receive Date: 20180918
  Receipt Date: 20181220
  Transmission Date: 20190204
  Serious: No
  Sender: FDA-Public Use
  Company Number: PHEH2018US038641

PATIENT
  Age: 63 Year
  Sex: Male

DRUGS (1)
  1. SANDOSTATIN LAR DEPOT [Suspect]
     Active Substance: OCTREOTIDE ACETATE
     Indication: CARCINOID SYNDROME
     Dosage: 80 MG, QMO
     Route: 030

REACTIONS (2)
  - Needle issue [Not Recovered/Not Resolved]
  - Injection site pain [Not Recovered/Not Resolved]
